FAERS Safety Report 7626653-2 (Version None)
Quarter: 2011Q3

REPORT INFORMATION
  Report Type: 
  Country: None (occurrence: None)
  Receive Date: 20110721
  Receipt Date: 20110601
  Transmission Date: 20111222
  Serious: No
  Sender: FDA-Public Use
  Company Number: US-NOVEN-11US002552

PATIENT
  Sex: Female

DRUGS (5)
  1. ANTIEPILEPTICS [Concomitant]
     Indication: PRODUCT USED FOR UNKNOWN INDICATION
     Route: 047
  2. ANALGESICS [Concomitant]
     Indication: PAIN
     Route: 048
  3. BYSTOLIC [Concomitant]
     Indication: CARDIAC DISORDER
     Dosage: UNK
     Route: 048
  4. FENTANYL [Suspect]
     Indication: FIBROMYALGIA
     Dosage: 75 UG, Q72H
     Route: 062
  5. ANTIDEPRESSANTS [Concomitant]
     Indication: PRODUCT USED FOR UNKNOWN INDICATION
     Route: 048

REACTIONS (3)
  - PRODUCT QUALITY ISSUE [None]
  - INADEQUATE ANALGESIA [None]
  - DRUG ADMINISTRATION ERROR [None]
